FAERS Safety Report 4312773-7 (Version None)
Quarter: 2004Q1

REPORT INFORMATION
  Report Type: 
  Country: None (occurrence: None)
  Receive Date: 20040304
  Receipt Date: 20040223
  Transmission Date: 20041129
  Serious: Yes (Other)
  Sender: FDA-Public Use
  Company Number: CA-JNJFOC-20040102467

PATIENT
  Age: 44 Year
  Sex: Female
  Weight: 63 kg

DRUGS (10)
  1. REMICADE [Suspect]
     Indication: PANCREAS ISLET CELL TRANSPLANT
     Dosage: 655 MG, INTRAVENOUS
     Route: 042
     Dates: start: 20021213
  2. REMICADE [Suspect]
     Indication: PANCREAS ISLET CELL TRANSPLANT
     Dosage: 655 MG, INTRAVENOUS
     Route: 042
     Dates: start: 20030315
  3. CAMPATH (CAMPATH-1H) [Concomitant]
  4. SIROLIMUS (SIROLIMUS) [Concomitant]
  5. TACROLIMUS (TACROLIMUS) [Concomitant]
  6. PENTAMIDINE (PENTAMIDINE) [Concomitant]
  7. ATIVAN [Concomitant]
  8. PRAVACHOL [Concomitant]
  9. PREVACID [Concomitant]
  10. MULTIVITAMIN (MULTIVITAMINS) [Concomitant]

REACTIONS (6)
  - ATAXIA [None]
  - CLUMSINESS [None]
  - HEADACHE [None]
  - METABOLIC DISORDER [None]
  - NERVOUS SYSTEM DISORDER [None]
  - TREMOR [None]
